FAERS Safety Report 20383039 (Version 1)
Quarter: 2022Q1

REPORT INFORMATION
  Report Type: Report from Study
  Country: US (occurrence: US)
  Receive Date: 20220127
  Receipt Date: 20220127
  Transmission Date: 20220423
  Serious: Yes (Other)
  Sender: FDA-Public Use
  Company Number: US-ABBVIE-22K-163-4250751-00

PATIENT
  Age: 65 Year
  Sex: Female

DRUGS (1)
  1. VENETOCLAX [Suspect]
     Active Substance: VENETOCLAX
     Indication: Chronic lymphocytic leukaemia
     Route: 048

REACTIONS (7)
  - Pulmonary embolism [Unknown]
  - Venous thrombosis [Unknown]
  - Nephrolithiasis [Unknown]
  - Dizziness [Unknown]
  - Diplopia [Unknown]
  - Balance disorder [Unknown]
  - Headache [Unknown]
